FAERS Safety Report 5378650-8 (Version None)
Quarter: 2007Q2

REPORT INFORMATION
  Report Type: 
  Country: None (occurrence: None)
  Receive Date: 20070629
  Receipt Date: 20070629
  Transmission Date: 20071010
  Serious: Yes (Hospitalization)
  Sender: FDA-Public Use
  Company Number: None

PATIENT
  Age: 60 Year
  Sex: Male
  Weight: 29.0302 kg

DRUGS (1)
  1. PEGINTERFERON ALPHA 2A [Suspect]
     Indication: HEPATITIS C VIRUS
     Dosage: 150 MCG WEEKLY SQ
     Route: 058

REACTIONS (1)
  - ANAEMIA [None]
